FAERS Safety Report 18958560 (Version 1)
Quarter: 2021Q1

REPORT INFORMATION
  Report Type: Spontaneous
  Country: US (occurrence: US)
  Receive Date: 20210302
  Receipt Date: 20210302
  Transmission Date: 20210420
  Serious: Yes (Hospitalization)
  Sender: FDA-Public Use
  Company Number: None

PATIENT
  Age: 73 Year
  Sex: Male

DRUGS (5)
  1. METFORMIN [Concomitant]
     Active Substance: METFORMIN HYDROCHLORIDE
  2. REPATHA [Suspect]
     Active Substance: EVOLOCUMAB
     Dosage: ?          OTHER FREQUENCY:EVERY TWO WEEKS;?
     Route: 058
     Dates: start: 20181127
  3. GABAPENTIN. [Concomitant]
     Active Substance: GABAPENTIN
  4. TAMSULOSIN [Concomitant]
     Active Substance: TAMSULOSIN
  5. ROPINIROLE. [Concomitant]
     Active Substance: ROPINIROLE

REACTIONS (8)
  - Cardiac disorder [None]
  - Musculoskeletal disorder [None]
  - Skin ulcer [None]
  - Peripheral swelling [None]
  - Bladder disorder [None]
  - Myocardial infarction [None]
  - Renal disorder [None]
  - Liver disorder [None]

NARRATIVE: CASE EVENT DATE: 20210301
